FAERS Safety Report 12573115 (Version 2)
Quarter: 2016Q3

REPORT INFORMATION
  Report Type: Report from Study
  Country: US (occurrence: US)
  Receive Date: 20160720
  Receipt Date: 20160825
  Transmission Date: 20161109
  Serious: Yes (Other)
  Sender: FDA-Public Use
  Company Number: US-ROCHE-1797677

PATIENT
  Age: 48 Year
  Sex: Female
  Weight: 70.5 kg

DRUGS (6)
  1. RO 4929097 (GAMMA SECRETASE INHIBITOR) [Suspect]
     Active Substance: INVESTIGATIONAL PRODUCT
     Indication: LIPOSARCOMA
     Dosage: COURSE 1
     Route: 048
     Dates: start: 20130404
  2. RO 4929097 (GAMMA SECRETASE INHIBITOR) [Suspect]
     Active Substance: INVESTIGATIONAL PRODUCT
     Dosage: COURSE 3
     Route: 048
     Dates: start: 20130516
  3. RO 4929097 (GAMMA SECRETASE INHIBITOR) [Suspect]
     Active Substance: INVESTIGATIONAL PRODUCT
     Dosage: COURSE 2
     Route: 048
     Dates: start: 20130425
  4. RO 4929097 (GAMMA SECRETASE INHIBITOR) [Suspect]
     Active Substance: INVESTIGATIONAL PRODUCT
     Dosage: COURSE 6
     Route: 048
     Dates: start: 20130718, end: 20130807
  5. RO 4929097 (GAMMA SECRETASE INHIBITOR) [Suspect]
     Active Substance: INVESTIGATIONAL PRODUCT
     Dosage: COURSE 4
     Route: 048
     Dates: start: 20130606
  6. RO 4929097 (GAMMA SECRETASE INHIBITOR) [Suspect]
     Active Substance: INVESTIGATIONAL PRODUCT
     Dosage: COURSE 5
     Route: 048
     Dates: start: 20130628

REACTIONS (2)
  - Hypokalaemia [Unknown]
  - Lymphocyte count decreased [Unknown]

NARRATIVE: CASE EVENT DATE: 20130923
